FAERS Safety Report 9980471 (Version 2)
Quarter: 2014Q3

REPORT INFORMATION
  Report Type: Report from Study
  Country: GB (occurrence: GB)
  Receive Date: 20140307
  Receipt Date: 20140721
  Transmission Date: 20150326
  Serious: Yes (Death)
  Sender: FDA-Public Use
  Company Number: GB-ROCHE-1359518

PATIENT
  Sex: Female

DRUGS (1)
  1. RITUXIMAB [Suspect]
     Active Substance: RITUXIMAB
     Indication: RHEUMATOID ARTHRITIS
     Dosage: DATE OF LAST DOSE PRIOR TO SAE : 29/OCT/2013
     Route: 065
     Dates: start: 20060510

REACTIONS (3)
  - Pneumonia [Fatal]
  - Myocardial ischaemia [Fatal]
  - Pulmonary fibrosis [Fatal]
